FAERS Safety Report 14801389 (Version 6)
Quarter: 2018Q4

REPORT INFORMATION
  Report Type: Report from Study
  Country: FR (occurrence: FR)
  Receive Date: 20180424
  Receipt Date: 20181009
  Transmission Date: 20190204
  Serious: Yes (Hospitalization, Other)
  Sender: FDA-Public Use
  Company Number: FR-BRISTOL-MYERS SQUIBB COMPANY-BMS-2018-035947

PATIENT
  Age: 67 Year
  Sex: Male

DRUGS (10)
  1. VASELINE                           /00473501/ [Concomitant]
     Active Substance: PARAFFIN
     Indication: LIP DRY
     Dosage: UNK
     Route: 061
     Dates: start: 20180131
  2. XANAX [Concomitant]
     Active Substance: ALPRAZOLAM
     Indication: INSOMNIA
     Dosage: UNK
     Route: 048
     Dates: start: 20171206
  3. PEVARYL                            /00418501/ [Concomitant]
     Active Substance: ECONAZOLE NITRATE
     Indication: ANAL FUNGAL INFECTION
     Dosage: UNK
     Route: 061
     Dates: start: 20180117
  4. REFRESH CELLUVISC [Concomitant]
     Active Substance: CARBOXYMETHYLCELLULOSE SODIUM
     Indication: DRY MOUTH
     Dosage: UNK
     Route: 031
     Dates: start: 20171206
  5. NIVOLUMAB [Suspect]
     Active Substance: NIVOLUMAB
     Indication: METASTATIC RENAL CELL CARCINOMA
     Dosage: 240 MG, QCYCLE
     Route: 065
     Dates: start: 20171018, end: 20180328
  6. IALUSET [Concomitant]
     Indication: ANAL FISSURE
     Dosage: UNK
     Route: 061
     Dates: start: 20180214
  7. MOVICOL [Concomitant]
     Active Substance: POLYETHYLENE GLYCOL 3350\POTASSIUM CHLORIDE\SODIUM BICARBONATE\SODIUM CHLORIDE
     Indication: CONSTIPATION
     Dosage: UNK
     Route: 048
     Dates: start: 20180228
  8. ARTISIAL [Concomitant]
     Active Substance: CALCIUM CHLORIDE\MAGNESIUM CHLORIDE\POTASSIUM CHLORIDE\POTASSIUM PHOSPHATE, DIBASIC\POTASSIUM PHOSPHATE, MONOBASIC\SODIUM CHLORIDE
     Indication: DRY MOUTH
     Dosage: UNK
     Route: 048
     Dates: start: 20171206
  9. SPASFON                            /00765801/ [Concomitant]
     Active Substance: PHLOROGLUCINOL\1,3,5-TRIMETHOXYBENZENE
     Indication: ABDOMINAL PAIN
     Dosage: UNK
     Route: 048
     Dates: start: 20180103
  10. TIVOZANIB [Suspect]
     Active Substance: TIVOZANIB
     Indication: METASTATIC RENAL CELL CARCINOMA
     Dosage: 1.5 MG, QCYCLE
     Route: 065
     Dates: start: 20171018, end: 20180328

REACTIONS (1)
  - Myositis [Recovered/Resolved]

NARRATIVE: CASE EVENT DATE: 20180328
